FAERS Safety Report 7342241-X (Version None)
Quarter: 2011Q1

REPORT INFORMATION
  Report Type: 
  Country: None (occurrence: None)
  Receive Date: 20110310
  Receipt Date: 20110302
  Transmission Date: 20110831
  Serious: Yes (Hospitalization)
  Sender: FDA-Public Use
  Company Number: US-BIOGENIDEC-2011BI008225

PATIENT
  Age: 54 Year
  Sex: Female

DRUGS (2)
  1. TYSABRI [Suspect]
     Indication: MULTIPLE SCLEROSIS
     Route: 042
     Dates: start: 20100201
  2. TYSABRI [Suspect]
     Route: 042
     Dates: start: 20071105, end: 20080819

REACTIONS (8)
  - BLINDNESS [None]
  - PARALYSIS [None]
  - PYREXIA [None]
  - VISION BLURRED [None]
  - APHAGIA [None]
  - DYSPNOEA [None]
  - HYPOAESTHESIA [None]
  - RESTLESSNESS [None]
